FAERS Safety Report 23525526 (Version 2)
Quarter: 2024Q2

REPORT INFORMATION
  Report Type: Report from Study
  Country: US (occurrence: US)
  Receive Date: 20240215
  Receipt Date: 20240430
  Transmission Date: 20240716
  Serious: Yes (Death, Other)
  Sender: FDA-Public Use
  Company Number: US-INSMED, INC.-2024-00488-US

PATIENT
  Age: 67 Year
  Sex: Female

DRUGS (5)
  1. ARIKAYCE [Suspect]
     Active Substance: AMIKACIN
     Indication: Mycobacterium avium complex infection
     Dosage: 590 MILLIGRAM, QD
     Route: 055
     Dates: start: 20210518
  2. ARIKAYCE [Suspect]
     Active Substance: AMIKACIN
     Dosage: 590 MILLIGRAM, TIW
     Route: 055
     Dates: start: 20220709
  3. ETHAMBUTOL [Suspect]
     Active Substance: ETHAMBUTOL HYDROCHLORIDE
     Indication: Product used for unknown indication
     Dosage: UNK, UNK
     Route: 065
  4. AZITHROMYCIN [Concomitant]
     Active Substance: AZITHROMYCIN
     Indication: Product used for unknown indication
     Dosage: UNK, UNK
     Route: 065
  5. CLOFAZIMINE [Concomitant]
     Active Substance: CLOFAZIMINE
     Indication: Product used for unknown indication
     Dosage: UNK, UNK
     Route: 065

REACTIONS (11)
  - Death [Fatal]
  - Chronic respiratory failure [Unknown]
  - Hypoxia [Unknown]
  - Atrial fibrillation [Unknown]
  - Physical deconditioning [Not Recovered/Not Resolved]
  - Deafness [Unknown]
  - Drug intolerance [Unknown]
  - Hypertension [Unknown]
  - Decreased appetite [Unknown]
  - Weight decreased [Not Recovered/Not Resolved]
  - Fatigue [Unknown]

NARRATIVE: CASE EVENT DATE: 20240130
